FAERS Safety Report 12384728 (Version 1)
Quarter: 2016Q2

REPORT INFORMATION
  Report Type: Spontaneous
  Country: US (occurrence: None)
  Receive Date: 20160518
  Receipt Date: 20160518
  Transmission Date: 20160815
  Serious: No
  Sender: FDA-Public Use
  Company Number: None

PATIENT
  Age: 66 Year
  Sex: Male
  Weight: 90.72 kg

DRUGS (11)
  1. NYSTATIN. [Concomitant]
     Active Substance: NYSTATIN
  2. PRAMIPEXOLE DIHYDROCLORIDE [Concomitant]
  3. LEVOTHYROXINE NA (SYNTHROID) [Concomitant]
  4. HYDROPHILIC TOP CREAM [Concomitant]
  5. TAMSULOSIN [Concomitant]
     Active Substance: TAMSULOSIN
  6. FLUOCINOLONE ACETONIDE. [Suspect]
     Active Substance: FLUOCINOLONE ACETONIDE
     Indication: SEBORRHOEIC DERMATITIS
     Dosage: APPLY THIN FILM TWICE DAILY ON THE SKIN
     Route: 061
     Dates: start: 20141201, end: 2015
  7. BRIMONIDINE TARTRATE. [Concomitant]
     Active Substance: BRIMONIDINE TARTRATE
  8. CLOTRIMAZOLE. [Concomitant]
     Active Substance: CLOTRIMAZOLE
  9. ALBUTEROL. [Concomitant]
     Active Substance: ALBUTEROL
  10. HCTZ/TRIATERENE [Concomitant]
  11. OMEPRAZOLE. [Concomitant]
     Active Substance: OMEPRAZOLE

REACTIONS (1)
  - No therapeutic response [None]

NARRATIVE: CASE EVENT DATE: 2013
